FAERS Safety Report 8347988-4 (Version None)
Quarter: 2012Q2

REPORT INFORMATION
  Report Type: 
  Country: None (occurrence: None)
  Receive Date: 20120507
  Receipt Date: 20120426
  Transmission Date: 20120825
  Serious: Yes (Other)
  Sender: FDA-Public Use
  Company Number: ABR_00454_2012

PATIENT
  Age: 78 Year
  Sex: Female

DRUGS (3)
  1. ERYTHROMYCIN [Suspect]
     Indication: INFECTION
     Dosage: (250 MG QID ORAL)
     Route: 048
     Dates: start: 20120329, end: 20120330
  2. ANGEZE/MONOMAX [Concomitant]
  3. NITROGLYCERIN [Concomitant]

REACTIONS (3)
  - TINNITUS [None]
  - HYPERHIDROSIS [None]
  - CHEST PAIN [None]
